FAERS Safety Report 13158780 (Version 1)
Quarter: 2017Q1

REPORT INFORMATION
  Report Type: Spontaneous
  Country: US (occurrence: US)
  Receive Date: 20170127
  Receipt Date: 20170127
  Transmission Date: 20170428
  Serious: Yes (Life-Threatening)
  Sender: FDA-Public Use
  Company Number: US-ASTRAZENECA-2017SE07689

PATIENT
  Age: 49 Year
  Sex: Male

DRUGS (14)
  1. HALOPERIDOL. [Suspect]
     Active Substance: HALOPERIDOL
     Indication: CONDITION AGGRAVATED
     Dosage: 5 MG ON POSTOPERATIVE DAY 8
     Route: 042
  2. FENTANYL. [Concomitant]
     Active Substance: FENTANYL
     Indication: PAIN
  3. QUETIAPINE. [Suspect]
     Active Substance: QUETIAPINE
     Indication: DELIRIUM
     Dosage: 50 MG ON POSTOPERATIVE DAY 2
     Route: 048
  4. OLANZAPINE. [Suspect]
     Active Substance: OLANZAPINE
     Dosage: 5 MG ON POSTOPERATIVE DAY 4
     Route: 065
  5. OLANZAPINE. [Suspect]
     Active Substance: OLANZAPINE
     Dosage: 20 MG ON POSTOPERATIVE DAY 6
     Route: 065
  6. HALOPERIDOL. [Suspect]
     Active Substance: HALOPERIDOL
     Indication: CONDITION AGGRAVATED
     Dosage: 5 MG ON POSTOPERATIVE DAY 4
     Route: 042
  7. HALOPERIDOL. [Suspect]
     Active Substance: HALOPERIDOL
     Indication: CONDITION AGGRAVATED
     Dosage: 10 MG ON POSTOPERATIVE DAY 7
     Route: 042
  8. QUETIAPINE. [Suspect]
     Active Substance: QUETIAPINE
     Indication: DELIRIUM
     Dosage: 25 MG ON POSTOPERATIVE DAY 3
     Route: 048
  9. HALOPERIDOL. [Suspect]
     Active Substance: HALOPERIDOL
     Indication: CONDITION AGGRAVATED
     Dosage: 5 MG ON POSTOPERATIVE DAY 9
     Route: 042
  10. PROPOFOL. [Concomitant]
     Active Substance: PROPOFOL
     Indication: SEDATION
     Route: 042
  11. QUETIAPINE. [Suspect]
     Active Substance: QUETIAPINE
     Indication: DELIRIUM
     Route: 048
  12. OLANZAPINE. [Suspect]
     Active Substance: OLANZAPINE
     Dosage: 15 MG ON POSTOPERATIVE DAY 5
     Route: 065
  13. CLONIDINE. [Concomitant]
     Active Substance: CLONIDINE
     Indication: AGITATION
     Dosage: EVERY 8 HOURS
     Route: 048
  14. MIDAZOLAM [Concomitant]
     Active Substance: MIDAZOLAM HYDROCHLORIDE
     Indication: AGITATION

REACTIONS (3)
  - Off label use [Unknown]
  - Product use issue [Unknown]
  - Neuroleptic malignant syndrome [Recovered/Resolved]
